FAERS Safety Report 6361336-0 (Version None)
Quarter: 2009Q3

REPORT INFORMATION
  Report Type: 
  Country: None (occurrence: None)
  Receive Date: 20090918
  Receipt Date: 20090908
  Transmission Date: 20100115
  Serious: Yes (Other)
  Sender: FDA-Public Use
  Company Number: B0557095A

PATIENT
  Age: 68 Year
  Sex: Female
  Weight: 55 kg

DRUGS (2)
  1. ARIXTRA [Suspect]
     Dosage: 7.5MG PER DAY
     Route: 058
     Dates: start: 20090119
  2. COLCHICINE [Concomitant]
     Indication: CHONDROCALCINOSIS
     Route: 065

REACTIONS (2)
  - OFF LABEL USE [None]
  - THROMBOCYTOSIS [None]
